FAERS Safety Report 6724839-2 (Version None)
Quarter: 2010Q2

REPORT INFORMATION
  Report Type: 
  Country: None (occurrence: None)
  Receive Date: 20100513
  Receipt Date: 20100513
  Transmission Date: 20101027
  Serious: No
  Sender: FDA-Public Use
  Company Number: None

PATIENT
  Sex: Female
  Weight: 59.6 kg

DRUGS (2)
  1. DEFERASIROX -EXJADE- 500 MG NOVARTIS [Suspect]
     Indication: IRON OVERLOAD
     Dosage: 500 MG DAILY PO
     Route: 048
     Dates: start: 20080401, end: 20100427
  2. PORTACATH [Concomitant]

REACTIONS (4)
  - DRUG TOXICITY [None]
  - RETINAL DEGENERATION [None]
  - RETINAL DISORDER [None]
  - VISUAL IMPAIRMENT [None]
